FAERS Safety Report 8547357-8 (Version None)
Quarter: 2012Q3

REPORT INFORMATION
  Report Type: 
  Country: None (occurrence: None)
  Receive Date: 20120727
  Receipt Date: 20120322
  Transmission Date: 20120928
  Serious: No
  Sender: FDA-Public Use
  Company Number: US-ASTRAZENECA-2012SE19519

PATIENT
  Age: 21 Year
  Sex: Male
  Weight: 64.9 kg

DRUGS (4)
  1. ATEROL [Concomitant]
     Indication: ATTENTION DEFICIT/HYPERACTIVITY DISORDER
  2. SEROQUEL XR [Suspect]
     Indication: MOOD ALTERED
     Route: 048
     Dates: start: 20120301
  3. CLONAZEPAM [Concomitant]
     Indication: ANXIETY
  4. PROZAC [Concomitant]
     Indication: DEPRESSION

REACTIONS (6)
  - TACHYPHRENIA [None]
  - NAUSEA [None]
  - INSOMNIA [None]
  - FATIGUE [None]
  - DRUG WITHDRAWAL SYNDROME [None]
  - DRUG DOSE OMISSION [None]
